FAERS Safety Report 16110106 (Version 1)
Quarter: 2019Q1

REPORT INFORMATION
  Report Type: Spontaneous
  Country: NO (occurrence: NO)
  Receive Date: 20190325
  Receipt Date: 20190325
  Transmission Date: 20190418
  Serious: Yes (Death, Other)
  Sender: FDA-Public Use
  Company Number: NO-ACCORD-115307

PATIENT
  Age: 74 Year
  Sex: Male

DRUGS (10)
  1. CISPLATIN. [Suspect]
     Active Substance: CISPLATIN
     Indication: TONSIL CANCER
     Dates: start: 20071115, end: 20071120
  2. CEFOTAXIME [Concomitant]
     Active Substance: CEFOTAXIME SODIUM
     Indication: SEPSIS
     Route: 051
     Dates: start: 20071127
  3. PERFALGAN [Concomitant]
     Active Substance: ACETAMINOPHEN
     Indication: PAIN
     Route: 051
     Dates: start: 200711
  4. STESOLID [Concomitant]
     Active Substance: DIAZEPAM
     Indication: PAIN
     Dosage: 5-10 MG
     Route: 051
     Dates: start: 200711
  5. MORFINA//MORPHINE [Concomitant]
     Active Substance: MORPHINE SULFATE
     Indication: PAIN
     Dosage: 5-10 MG
     Route: 051
     Dates: start: 200711
  6. ZINACEF [Concomitant]
     Active Substance: CEFUROXIME SODIUM
     Indication: SEPSIS
     Dates: start: 20071125
  7. METRONIDAZOLE. [Concomitant]
     Active Substance: METRONIDAZOLE
     Indication: SEPSIS
     Dosage: UNCERTAIN IF THE DOSE WAS CHANGED
     Route: 051
     Dates: start: 20071125
  8. GENSUMYCIN [Concomitant]
     Active Substance: GENTAMICIN
     Indication: SEPSIS
     Dosage: WITHDRAWN BECAUSE BOTH CISPLATIN AND GENTAMYCIN  ARE NEPHROTOXIC
     Dates: start: 20071125, end: 20071127
  9. HALDOL [Concomitant]
     Active Substance: HALOPERIDOL
     Indication: CONFUSIONAL STATE
     Route: 030
     Dates: start: 20071128
  10. FLUOROURACIL. [Suspect]
     Active Substance: FLUOROURACIL
     Indication: TONSIL CANCER
     Dates: start: 20071115, end: 20071120

REACTIONS (4)
  - Hypokalaemia [Not Recovered/Not Resolved]
  - Diarrhoea [Not Recovered/Not Resolved]
  - Streptococcal sepsis [Fatal]
  - Neutropenia [Fatal]

NARRATIVE: CASE EVENT DATE: 200711
